FAERS Safety Report 24634521 (Version 2)
Quarter: 2024Q4

REPORT INFORMATION
  Report Type: Spontaneous
  Country: US (occurrence: US)
  Receive Date: 20241119
  Receipt Date: 20241221
  Transmission Date: 20250115
  Serious: No
  Sender: ABBVIE
  Company Number: US-ABBVIE-6004037

PATIENT
  Sex: Female

DRUGS (2)
  1. ARMOUR THYROID [Suspect]
     Active Substance: THYROID, PORCINE
     Indication: Product used for unknown indication
     Dosage: STRENGTH 60 MG
     Route: 048
  2. NP THYROID [Concomitant]
     Active Substance: LEVOTHYROXINE\LIOTHYRONINE
     Indication: Product used for unknown indication

REACTIONS (9)
  - Abdominal distension [Recovered/Resolved]
  - Brain fog [Recovered/Resolved]
  - Immune system disorder [Unknown]
  - Somnolence [Recovered/Resolved]
  - Sneezing [Unknown]
  - Abdominal pain upper [Recovered/Resolved]
  - Inflammation [Recovered/Resolved]
  - Gastrooesophageal reflux disease [Recovered/Resolved]
  - Renal pain [Recovered/Resolved]
